FAERS Safety Report 7833666-4 (Version None)
Quarter: 2011Q4

REPORT INFORMATION
  Report Type: 
  Country: None (occurrence: None)
  Receive Date: 20111024
  Receipt Date: 20111014
  Transmission Date: 20120403
  Serious: Yes (Other)
  Sender: FDA-Public Use
  Company Number: CA-UCBSA-029689

PATIENT
  Age: 54 Year
  Sex: Female
  Weight: 68.03 kg

DRUGS (8)
  1. CIMZIA [Suspect]
     Indication: CROHN'S DISEASE
     Route: 058
     Dates: start: 20101001
  2. CIMZIA [Suspect]
     Route: 058
  3. TYGACIL [Concomitant]
     Indication: CELLULITIS
     Route: 042
     Dates: start: 20110326
  4. LIPITOR [Concomitant]
     Indication: HYPERLIPIDAEMIA
     Route: 048
  5. CLINDAMYCINE [Concomitant]
     Indication: INFECTION
     Dosage: 300MG THRICE A DAY, AS NEEDED
     Route: 048
     Dates: start: 20110214
  6. DICLOFENAC [Concomitant]
     Indication: INFLAMMATION
     Dosage: 100SR
     Route: 048
  7. CLARYTHROMYCINE [Concomitant]
     Indication: INFECTION
     Route: 048
     Dates: start: 20110324
  8. METHOTREXATE [Concomitant]
     Indication: CROHN'S DISEASE
     Route: 048
     Dates: start: 20110223, end: 20110101

REACTIONS (7)
  - CELLULITIS [None]
  - LIPOMA [None]
  - ASTHENIA [None]
  - SINUS CONGESTION [None]
  - TOOTH ABSCESS [None]
  - LYMPHADENOPATHY [None]
  - MASS [None]
